FAERS Safety Report 11852187 (Version 3)
Quarter: 2016Q3

REPORT INFORMATION
  Report Type: Report from Study
  Country: US (occurrence: US)
  Receive Date: 20151218
  Receipt Date: 20160928
  Transmission Date: 20161109
  Serious: Yes (Life-Threatening, Hospitalization, Other)
  Sender: FDA-Public Use
  Company Number: US-009507513-1512USA008244

PATIENT
  Age: 14 Year
  Sex: Female
  Weight: 59 kg

DRUGS (20)
  1. METHOTREXATE SODIUM. [Suspect]
     Active Substance: METHOTREXATE SODIUM
     Indication: ANAPLASTIC LARGE CELL LYMPHOMA T- AND NULL-CELL TYPES
     Dosage: 7.5-12 MG, PROPHASE (CYCLE=5DAYS), ON AGE 1 (AGE BASED DOSING)
     Route: 037
     Dates: start: 201410, end: 201412
  2. CYCLOPHOSPHAMIDE. [Suspect]
     Active Substance: CYCLOPHOSPHAMIDE
     Dosage: 200 MG/M2, COURSE B (CYCLE 5 DAYS), OVER 15-30 MINUTES ON 1 AND 5
     Route: 042
     Dates: start: 201410, end: 201412
  3. CYCLOPHOSPHAMIDE. [Suspect]
     Active Substance: CYCLOPHOSPHAMIDE
     Dosage: 1700 TOTAL DOSE
     Route: 042
     Dates: start: 20141217, end: 20141221
  4. CRIZOTINIB [Suspect]
     Active Substance: CRIZOTINIB
     Dosage: 165 MG/M2, BID ON DAYS 1-21 (TOTAL DOSE 2500 MG)
     Route: 048
     Dates: start: 20141217, end: 20141222
  5. HYDROCORTISONE. [Concomitant]
     Active Substance: HYDROCORTISONE
     Dosage: 7.5-12 MG IT ON DAY 1 (AGE BASED DOSING)
     Route: 037
     Dates: start: 201410, end: 201412
  6. CRIZOTINIB [Suspect]
     Active Substance: CRIZOTINIB
     Indication: ANAPLASTIC LARGE CELL LYMPHOMA T- AND NULL-CELL TYPES
     Dosage: 165 MG/M2, BID ON DAYS 1-21 (TOTAL DOSE 2500 MG)
     Route: 048
     Dates: end: 20141222
  7. DOXORUBICIN HYDROCHLORIDE. [Suspect]
     Active Substance: DOXORUBICIN HYDROCHLORIDE
     Dosage: 84 MG TOTAL DOSE
     Route: 042
     Dates: end: 20141221
  8. METHOTREXATE SODIUM. [Suspect]
     Active Substance: METHOTREXATE SODIUM
     Dosage: 3000 MG/M2, COURSE A: OVER 3 HOURS ON DAY 1
     Route: 042
     Dates: start: 201410, end: 201412
  9. DEXAMETHASONE. [Suspect]
     Active Substance: DEXAMETHASONE
     Dosage: 85 MG TOTAL DOSE
     Route: 048
     Dates: start: 20141217, end: 20141221
  10. DOXORUBICIN HYDROCHLORIDE. [Suspect]
     Active Substance: DOXORUBICIN HYDROCHLORIDE
     Indication: ANAPLASTIC LARGE CELL LYMPHOMA T- AND NULL-CELL TYPES
     Dosage: 25 MG/M2, COURSE B: OVER 1-15 MIN ON DAYS 4 AND 5
     Route: 042
     Dates: start: 201410, end: 201412
  11. CYTARABINE. [Concomitant]
     Active Substance: CYTARABINE
     Dosage: 15-24 MG ON DAY 1 (AGE BASED DOSING) COURSE A: CYCLES 1, 3 AND 5 (CYCLE=21 DAYS)
     Route: 037
     Dates: start: 201410, end: 201412
  12. DEXAMETHASONE. [Suspect]
     Active Substance: DEXAMETHASONE
     Indication: ANAPLASTIC LARGE CELL LYMPHOMA T- AND NULL-CELL TYPES
     Dosage: 5 MG/M2, PROPHASE (CYCLE =5DAYS): QD ON DAYS 1-2 AND PO BID ON DAYS 3-5
     Route: 048
     Dates: start: 201410, end: 201412
  13. METHOTREXATE SODIUM. [Suspect]
     Active Substance: METHOTREXATE SODIUM
     Dosage: 5070 MG TOTAL DOSE
     Route: 065
     Dates: start: 20141218, end: 20141218
  14. VP-16 [Suspect]
     Active Substance: ETOPOSIDE
     Indication: ANAPLASTIC LARGE CELL LYMPHOMA T- AND NULL-CELL TYPES
     Dosage: 100 MG/M2, OVER 2 HOURS ON DAYS 4 AND 5
     Route: 042
     Dates: start: 201410, end: 201412
  15. IFOSFAMIDE. [Concomitant]
     Active Substance: IFOSFAMIDE
     Dosage: 800 MG/M2 IV OVER 60 MINUTES ON DAYS 1-5
     Route: 042
     Dates: start: 201410, end: 201412
  16. DEXAMETHASONE. [Suspect]
     Active Substance: DEXAMETHASONE
     Dosage: 5 MG/M2, BID ON DAYS 1-5, COURSE B
     Route: 048
     Dates: start: 201410, end: 201412
  17. ONDANSETRON HYDROCHLORIDE. [Suspect]
     Active Substance: ONDANSETRON HYDROCHLORIDE
     Dosage: UNK
  18. CYCLOPHOSPHAMIDE. [Suspect]
     Active Substance: CYCLOPHOSPHAMIDE
     Indication: ANAPLASTIC LARGE CELL LYMPHOMA T- AND NULL-CELL TYPES
     Dosage: 200 MG/M2, PROPHASE (CYCLE 5 DAYS), OVER 15-30 MINUTES ON DAYS 1 AND 2
     Route: 042
     Dates: start: 201410, end: 201412
  19. DEXAMETHASONE. [Suspect]
     Active Substance: DEXAMETHASONE
     Dosage: 5 MG/M2, COURSE A: BID ON DAYS 1-5
     Route: 048
     Dates: start: 201410, end: 201412
  20. METHOTREXATE SODIUM. [Suspect]
     Active Substance: METHOTREXATE SODIUM
     Dosage: 3000 MG/M2, COURSE B: OVER 3 HOURS ON 1 DAY
     Route: 042
     Dates: start: 201410, end: 201412

REACTIONS (3)
  - Electrocardiogram QT prolonged [Recovered/Resolved]
  - Hypotension [Unknown]
  - Sepsis [Unknown]

NARRATIVE: CASE EVENT DATE: 20141221
